FAERS Safety Report 25739708 (Version 1)
Quarter: 2025Q3

REPORT INFORMATION
  Report Type: Spontaneous
  Country: US (occurrence: None)
  Receive Date: 20250828
  Receipt Date: 20250828
  Transmission Date: 20251021
  Serious: Yes (Death)
  Sender: FDA-CTU
  Company Number: None

PATIENT
  Sex: Female
  Weight: 51.26 kg

DRUGS (10)
  1. COLLAGENASE SANTYL [Suspect]
     Active Substance: COLLAGENASE CLOSTRIDIUM HISTOLYTICUM
     Indication: Injury
     Dosage: OTHER QUANTITY : NICKEL THICK LAYER;?FREQUENCY : DAILY;?
     Route: 061
     Dates: start: 20250609, end: 20250826
  2. ATENOLOL [Concomitant]
     Active Substance: ATENOLOL
  3. BUSPIRONE [Concomitant]
     Active Substance: BUSPIRONE HYDROCHLORIDE
  4. SEROQUEL [Concomitant]
     Active Substance: QUETIAPINE FUMARATE
  5. ZOLOFT [Concomitant]
     Active Substance: SERTRALINE HYDROCHLORIDE
  6. FOLIC ACID [Concomitant]
     Active Substance: FOLIC ACID
  7. NEURONTIN [Concomitant]
     Active Substance: GABAPENTIN
  8. FEMARA [Concomitant]
     Active Substance: LETROZOLE
  9. MIDODRINE [Concomitant]
     Active Substance: MIDODRINE
  10. GEMTESA [Concomitant]
     Active Substance: VIBEGRON

REACTIONS (2)
  - Postoperative wound infection [None]
  - Fungal infection [None]

NARRATIVE: CASE EVENT DATE: 20250826
